FAERS Safety Report 4935887-7 (Version None)
Quarter: 2006Q1

REPORT INFORMATION
  Report Type: 
  Country: None (occurrence: None)
  Receive Date: 20060307
  Receipt Date: 20060301
  Transmission Date: 20060701
  Serious: Yes (Hospitalization)
  Sender: FDA-Public Use
  Company Number: FR-BOEHRINGER INGELHEIM PHARMACEUTICALS, INC.-2006-FF-00161PF

PATIENT
  Age: 76 Year
  Sex: Male

DRUGS (8)
  1. SPIRIVA [Suspect]
     Indication: CHRONIC OBSTRUCTIVE PULMONARY DISEASE
     Route: 055
  2. COMBIVENT [Suspect]
     Indication: CHRONIC OBSTRUCTIVE PULMONARY DISEASE
     Route: 055
  3. PERMIXON [Concomitant]
     Indication: BENIGN PROSTATIC HYPERPLASIA
  4. ENALAPRIL MALEATE AND HYDROCHLOROTHIAZIDE [Concomitant]
     Indication: HYPERTENSION
  5. OMEPRAZOLE [Concomitant]
  6. SOLUPRED [Concomitant]
  7. DEROXAT [Concomitant]
  8. LEXOMIL [Concomitant]

REACTIONS (3)
  - DRY MOUTH [None]
  - RESPIRATORY TRACT INFECTION [None]
  - URINARY RETENTION [None]
